FAERS Safety Report 6750768-4 (Version None)
Quarter: 2010Q2

REPORT INFORMATION
  Report Type: 
  Country: None (occurrence: None)
  Receive Date: 20100602
  Receipt Date: 20100524
  Transmission Date: 20101027
  Serious: No
  Sender: FDA-Public Use
  Company Number: 2008BI029485

PATIENT
  Age: 58 Year
  Sex: Female

DRUGS (11)
  1. TYSABRI [Suspect]
     Indication: MULTIPLE SCLEROSIS
     Route: 042
     Dates: start: 20080620
  2. VESICARE [Concomitant]
     Route: 048
     Dates: start: 20081111
  3. TYLENOL (CAPLET) [Concomitant]
     Indication: PROPHYLAXIS
     Route: 048
     Dates: start: 20081111
  4. CLARITIN [Concomitant]
     Indication: PROPHYLAXIS
     Route: 048
     Dates: start: 20081111
  5. FOSAMAX [Concomitant]
     Route: 048
     Dates: start: 20081111
  6. LYRICA [Concomitant]
     Route: 048
     Dates: start: 20081111
  7. ATENOLOL [Concomitant]
     Route: 048
     Dates: start: 20081111
  8. REMIFEMIN [Concomitant]
     Route: 048
     Dates: start: 20081111
  9. CITRACAL PLUS [Concomitant]
     Route: 048
     Dates: start: 20080509
  10. B COMPLEX-B12 [Concomitant]
     Route: 048
     Dates: start: 20080509
  11. OMEGA 3,6,9 [Concomitant]

REACTIONS (4)
  - FEAR [None]
  - HYPERSENSITIVITY [None]
  - NEUROPATHY PERIPHERAL [None]
  - URINARY TRACT INFECTION [None]
